FAERS Safety Report 19221799 (Version 1)
Quarter: 2021Q2

REPORT INFORMATION
  Report Type: Report from Study
  Country: US (occurrence: US)
  Receive Date: 20210506
  Receipt Date: 20210506
  Transmission Date: 20210717
  Serious: No
  Sender: FDA-Public Use
  Company Number: NVSC2021US097018

PATIENT
  Sex: Female

DRUGS (1)
  1. COSENTYX [Suspect]
     Active Substance: SECUKINUMAB
     Indication: PSORIASIS
     Dosage: 300 MG, QW (QW FOR 5 WEEKS AND THEN Q4 WEEKS)
     Route: 058
     Dates: start: 20210423

REACTIONS (2)
  - Rash [Recovering/Resolving]
  - Blister [Unknown]
